FAERS Safety Report 11410975 (Version 1)
Quarter: 2015Q3

REPORT INFORMATION
  Report Type: Spontaneous
  Country: US (occurrence: US)
  Receive Date: 20150821
  Receipt Date: 20150821
  Transmission Date: 20151125
  Serious: No
  Sender: FDA-Public Use
  Company Number: US-ELI_LILLY_AND_COMPANY-US201002004472

PATIENT
  Sex: Female

DRUGS (3)
  1. METFORMIN [Concomitant]
     Active Substance: METFORMIN HYDROCHLORIDE
     Dosage: 1000 U, EACH MORNING
  2. HUMULIN N [Suspect]
     Active Substance: INSULIN HUMAN
     Indication: DIABETES MELLITUS
     Dosage: 18 U, EACH EVENING
     Dates: start: 20100112
  3. METFORMIN [Concomitant]
     Active Substance: METFORMIN HYDROCHLORIDE
     Dosage: 1000 U, EACH EVENING

REACTIONS (12)
  - Emotional distress [Unknown]
  - Anger [Unknown]
  - Blood glucose increased [Recovered/Resolved]
  - Nasal congestion [Unknown]
  - Fear [Unknown]
  - Nasopharyngitis [Unknown]
  - Rhinorrhoea [Unknown]
  - Cough [Unknown]
  - Incorrect dose administered [Unknown]
  - Anxiety [Unknown]
  - Blood glucose decreased [Unknown]
  - Stress [Unknown]

NARRATIVE: CASE EVENT DATE: 2010
